FAERS Safety Report 4823701-X (Version None)
Quarter: 2005Q4

REPORT INFORMATION
  Report Type: 
  Country: None (occurrence: None)
  Receive Date: 20051109
  Receipt Date: 20051010
  Transmission Date: 20060501
  Serious: Yes (Hospitalization)
  Sender: FDA-Public Use
  Company Number: 2005AP05753

PATIENT
  Age: 19622 Day
  Sex: Female

DRUGS (12)
  1. SEROQUEL [Suspect]
     Route: 048
  2. EFFEXOR XR [Suspect]
     Indication: ANXIETY DISORDER
     Route: 048
     Dates: end: 20050415
  3. PROZAC [Concomitant]
  4. CORTISONE ACETATE TAB [Concomitant]
  5. NEURONTIN [Concomitant]
  6. VALIUM [Concomitant]
  7. XANAX [Concomitant]
  8. PARIET [Concomitant]
  9. ENALAPRIL MALEATE [Concomitant]
  10. DI-GESIC [Concomitant]
  11. PETHIDINE HYDROCHLORIDE [Concomitant]
  12. VITAMINS [Concomitant]

REACTIONS (14)
  - AGITATION [None]
  - AMENORRHOEA [None]
  - BLOOD CHOLESTEROL INCREASED [None]
  - BRUXISM [None]
  - CANDIDIASIS [None]
  - DERMATITIS EXFOLIATIVE [None]
  - FLUSHING [None]
  - MANIA [None]
  - MEMORY IMPAIRMENT [None]
  - POOR PERIPHERAL CIRCULATION [None]
  - PSORIASIS [None]
  - SKIN DISCOLOURATION [None]
  - SUICIDAL IDEATION [None]
  - TONGUE BITING [None]
